FAERS Safety Report 5018052-7 (Version None)
Quarter: 2006Q2

REPORT INFORMATION
  Report Type: 
  Country: None (occurrence: None)
  Receive Date: 20060530
  Receipt Date: 20050105
  Transmission Date: 20061013
  Serious: Yes (Death, Hospitalization)
  Sender: FDA-Public Use
  Company Number: 2005006514

PATIENT
  Age: 69 Year
  Sex: Female

DRUGS (6)
  1. LYRICA [Suspect]
     Indication: ILL-DEFINED DISORDER
     Dosage: ORAL
     Route: 048
  2. AMITRIPTYLINE HCL [Suspect]
     Indication: ILL-DEFINED DISORDER
     Dosage: 50 MG (50 MG) ORAL
     Route: 048
  3. SALBUTAMOL [Concomitant]
  4. GLYCERYL TRINITRATE [Concomitant]
  5. CALCIUM CHANNEL BLOCKERS [Concomitant]
  6. SERETIDE EVOHALER (FLUTICASONE PROPIONATE, SALMETEROL XINAFOATE) [Concomitant]

REACTIONS (6)
  - ANTICHOLINERGIC SYNDROME [None]
  - CARDIOMEGALY [None]
  - DRY MOUTH [None]
  - LIVER DISORDER [None]
  - OEDEMA [None]
  - SEDATION [None]
